FAERS Safety Report 6839276-X (Version None)
Quarter: 2010Q3

REPORT INFORMATION
  Report Type: 
  Country: None (occurrence: None)
  Receive Date: 20100714
  Receipt Date: 20100505
  Transmission Date: 20110219
  Serious: No
  Sender: FDA-Public Use
  Company Number: US-KINGPHARMUSA00001-K201000548

PATIENT
  Age: 22 Year
  Sex: Female
  Weight: 71.655 kg

DRUGS (1)
  1. BICILLIN L-A [Suspect]
     Indication: PHARYNGITIS STREPTOCOCCAL
     Dosage: 1200000 U, SINGLE
     Route: 030
     Dates: start: 20100505, end: 20100505

REACTIONS (2)
  - RASH [None]
  - SWELLING FACE [None]
